FAERS Safety Report 7296954-9 (Version None)
Quarter: 2011Q1

REPORT INFORMATION
  Report Type: 
  Country: None (occurrence: None)
  Receive Date: 20110216
  Receipt Date: 20110211
  Transmission Date: 20110831
  Serious: Yes (Other)
  Sender: FDA-Public Use
  Company Number: US-JNJFOC-20100801467

PATIENT
  Sex: Female

DRUGS (3)
  1. PREDNISONE [Suspect]
     Indication: ILL-DEFINED DISORDER
     Route: 065
  2. LEVAQUIN [Suspect]
     Indication: PRODUCT USED FOR UNKNOWN INDICATION
     Route: 042
  3. LEVAQUIN [Suspect]
     Indication: CHOLANGITIS
     Route: 048

REACTIONS (5)
  - ROTATOR CUFF SYNDROME [None]
  - TENDON DISORDER [None]
  - BURSITIS [None]
  - BONE PAIN [None]
  - JOINT INJURY [None]
